FAERS Safety Report 7823346-3 (Version None)
Quarter: 2011Q4

REPORT INFORMATION
  Report Type: 
  Country: None (occurrence: None)
  Receive Date: 20111019
  Receipt Date: 20111003
  Transmission Date: 20120403
  Serious: Yes (Hospitalization)
  Sender: FDA-Public Use
  Company Number: CA-JNJFOC-20110809512

PATIENT
  Sex: Male
  Weight: 83.92 kg

DRUGS (4)
  1. ASACOL [Concomitant]
     Route: 065
  2. REMICADE [Suspect]
     Route: 042
     Dates: start: 20110710
  3. REMICADE [Suspect]
     Indication: CROHN'S DISEASE
     Route: 042
     Dates: start: 20100114
  4. REMICADE [Suspect]
     Dosage: TOTAL 13 INFLIIXMAB INFUSIONS
     Route: 042
     Dates: start: 20110903, end: 20110903

REACTIONS (4)
  - LYMPHADENOPATHY [None]
  - DIABETES MELLITUS [None]
  - PROSTATE CANCER [None]
  - HYPERGLYCAEMIA [None]
